FAERS Safety Report 14157012 (Version 1)
Quarter: 2017Q4

REPORT INFORMATION
  Report Type: Spontaneous
  Country: US (occurrence: US)
  Receive Date: 20171103
  Receipt Date: 20171103
  Transmission Date: 20180321
  Serious: Yes (Hospitalization)
  Sender: FDA-Public Use
  Company Number: None

PATIENT
  Sex: Female
  Weight: 112.5 kg

DRUGS (5)
  1. DOXYCYCLINE HYCLATE 100MG CAPSULES [Suspect]
     Active Substance: DOXYCYCLINE HYCLATE
     Indication: ALOPECIA
     Dosage: ?          QUANTITY:120 CAPSULE(S);?
     Route: 048
  2. COLCHICINE. [Concomitant]
     Active Substance: COLCHICINE
  3. PANTOPRAZOLE [Concomitant]
     Active Substance: PANTOPRAZOLE
  4. HYDROCHLOROTHIAZIDE. [Concomitant]
     Active Substance: HYDROCHLOROTHIAZIDE
  5. IBUPROFEN. [Concomitant]
     Active Substance: IBUPROFEN

REACTIONS (2)
  - Inflammation [None]
  - Pericarditis [None]

NARRATIVE: CASE EVENT DATE: 20171031
